FAERS Safety Report 9818165 (Version 1)
Quarter: 2014Q1

REPORT INFORMATION
  Report Type: Spontaneous
  Country: US (occurrence: None)
  Receive Date: 20140113
  Receipt Date: 20140113
  Transmission Date: 20141002
  Serious: Yes (Other)
  Sender: FDA-Public Use
  Company Number: None

PATIENT
  Age: 64 Year
  Sex: Female
  Weight: 107.05 kg

DRUGS (4)
  1. CLINDAMYCIN [Suspect]
     Indication: GINGIVITIS
     Route: 048
  2. SEROQUEL [Concomitant]
  3. PROTONIX [Concomitant]
  4. ATIVAN [Concomitant]

REACTIONS (2)
  - Swollen tongue [None]
  - Pharyngeal oedema [None]
